FAERS Safety Report 7292673-3 (Version None)
Quarter: 2011Q1

REPORT INFORMATION
  Report Type: 
  Country: None (occurrence: None)
  Receive Date: 20110203
  Receipt Date: 20110118
  Transmission Date: 20110831
  Serious: Yes (Death)
  Sender: FDA-Public Use
  Company Number: B0694711A

PATIENT
  Age: 37 Year
  Sex: Female

DRUGS (14)
  1. TOPIRAMATE [Suspect]
  2. OXCARBAZEPINE [Suspect]
     Dosage: ORAL
     Route: 048
  3. ETHANOL (FORMULATION UNKNOWN) (ALCOHOL) [Suspect]
     Dosage: ORAL
     Route: 048
  4. WELLBUTRIN [Suspect]
     Dosage: ORAL
     Route: 048
  5. ARIPIPRAZOLE [Suspect]
     Dosage: ORAL
     Route: 048
  6. GEMFIBROZIL [Suspect]
     Dosage: ORAL
     Route: 048
  7. THYROXINE SODIUM (FORMULATION UNKNOWN) (GENERIC) (LEVOTHYROXINE SODIU [Suspect]
     Dosage: ORAL
     Route: 048
  8. CLONAZEPAM [Suspect]
     Dosage: ORAL
     Route: 048
  9. SIMVASTATIN [Suspect]
     Dosage: ORAL
     Route: 048
  10. DULOXETINE HYDROCHLORIDE [Suspect]
     Dosage: ORAL
     Route: 048
  11. METFORMIN HCL [Suspect]
  12. OPIATE (FORMULATION UNKNOWN) (OPIATE) [Suspect]
     Dosage: ORAL
     Route: 048
  13. PREDNISONE [Suspect]
     Dosage: ORAL
     Route: 048
  14. ZANTAC [Suspect]
     Dosage: ORAL
     Route: 048

REACTIONS (2)
  - COMPLETED SUICIDE [None]
  - CARDIO-RESPIRATORY ARREST [None]
